FAERS Safety Report 13935124 (Version 1)
Quarter: 2017Q3

REPORT INFORMATION
  Report Type: Spontaneous
  Country: US (occurrence: None)
  Receive Date: 20170901
  Receipt Date: 20170901
  Transmission Date: 20171127
  Serious: Yes (Hospitalization)
  Sender: FDA-Public Use
  Company Number: None

PATIENT
  Age: 72 Year
  Sex: Male
  Weight: 64 kg

DRUGS (2)
  1. SERTRALINE [Suspect]
     Active Substance: SERTRALINE HYDROCHLORIDE
     Indication: HYPONATRAEMIA
     Route: 048
     Dates: start: 20170301, end: 20170625
  2. SERTRALINE [Suspect]
     Active Substance: SERTRALINE HYDROCHLORIDE
     Indication: INAPPROPRIATE ANTIDIURETIC HORMONE SECRETION
     Route: 048
     Dates: start: 20170301, end: 20170625

REACTIONS (5)
  - Diarrhoea [None]
  - Electrolyte imbalance [None]
  - Hypovolaemia [None]
  - Inappropriate antidiuretic hormone secretion [None]
  - Hyponatraemia [None]

NARRATIVE: CASE EVENT DATE: 20170622
